FAERS Safety Report 9579615 (Version 2)
Quarter: 2013Q4

REPORT INFORMATION
  Report Type: Spontaneous
  Country: CH (occurrence: CH)
  Receive Date: 20131002
  Receipt Date: 20131002
  Transmission Date: 20140711
  Serious: Yes (Hospitalization)
  Sender: FDA-Public Use
  Company Number: CH-ROCHE-1204280

PATIENT
  Age: 87 Year
  Sex: Male
  Weight: 71.5 kg

DRUGS (8)
  1. MABTHERA [Suspect]
     Indication: NON-HODGKIN^S LYMPHOMA
     Route: 041
     Dates: start: 20130101, end: 20130103
  2. TAVANIC [Suspect]
     Indication: BRONCHITIS
     Route: 048
     Dates: start: 20121228, end: 20130103
  3. ASPIRIN CARDIO [Concomitant]
     Indication: MYOCARDIAL ISCHAEMIA
     Route: 048
  4. CITALOPRAM [Concomitant]
     Indication: DEPRESSION
     Route: 048
     Dates: start: 20130110
  5. BELOC [Concomitant]
     Indication: MYOCARDIAL ISCHAEMIA
     Route: 048
  6. CRESTOR [Concomitant]
     Indication: MYOCARDIAL ISCHAEMIA
     Route: 048
  7. CALCIAPS D3 [Concomitant]
     Indication: MYOCARDIAL ISCHAEMIA
     Route: 048
     Dates: start: 20130111
  8. CETIRIZINE [Concomitant]
     Route: 048
     Dates: start: 20130107, end: 20130114

REACTIONS (1)
  - Drug eruption [Recovered/Resolved]
